FAERS Safety Report 7151057-9 (Version None)
Quarter: 2010Q4

REPORT INFORMATION
  Report Type: 
  Country: None (occurrence: None)
  Receive Date: 20101126
  Receipt Date: 20101111
  Transmission Date: 20110411
  Serious: Yes (Hospitalization)
  Sender: FDA-Public Use
  Company Number: 2010110046

PATIENT
  Age: 78 Year
  Sex: Female
  Weight: 68 kg

DRUGS (8)
  1. TORSEMIDE [Suspect]
     Indication: HYPERTENSION
     Dosage: 5 MG (5 MG, 1 IN 1 D), ORAL
     Route: 048
     Dates: start: 20100501
  2. CIPROFLOXACIN [Suspect]
     Indication: DIVERTICULITIS
     Dosage: 1000 MG (500 MG, 2 IN 1 D), ORAL
     Route: 048
     Dates: start: 20100709, end: 20100718
  3. RAMILICH TABLETTEN (RAMIPRIL) [Suspect]
     Indication: HYPERTENSION
     Dosage: 10 MG (5 MG, 2 IN 1 D), ORAL
     Route: 048
     Dates: start: 20100501
  4. METRONIDAZOLE [Concomitant]
  5. METOPROGAMMA (METOPROLOL TARTRATE) [Concomitant]
  6. PANZYTRAT (LIPASE, AMYLASE, PROTEASEN) [Concomitant]
  7. LEVOTHYROXINE SODIUM [Concomitant]
  8. ASS (ACETYSALICYLIC ACID) [Concomitant]

REACTIONS (9)
  - AGITATION [None]
  - DEHYDRATION [None]
  - DIVERTICULITIS [None]
  - FLUID INTAKE REDUCED [None]
  - HAEMATOCRIT DECREASED [None]
  - HAEMOGLOBIN DECREASED [None]
  - RENAL FAILURE ACUTE [None]
  - TACHYCARDIA [None]
  - TONGUE DRY [None]
